FAERS Safety Report 20710574 (Version 1)
Quarter: 2022Q2

REPORT INFORMATION
  Report Type: Spontaneous
  Country: US (occurrence: US)
  Receive Date: 20220414
  Receipt Date: 20220414
  Transmission Date: 20220720
  Serious: No
  Sender: FDA-Public Use
  Company Number: US-PFIZER INC-202200445038

PATIENT
  Sex: Male

DRUGS (2)
  1. CIPROFLOXACIN [Interacting]
     Active Substance: CIPROFLOXACIN
     Dosage: UNK
  2. METHOTREXATE SODIUM [Interacting]
     Active Substance: METHOTREXATE SODIUM
     Dosage: UNK

REACTIONS (7)
  - Drug interaction [Unknown]
  - Restlessness [Unknown]
  - Insomnia [Unknown]
  - Anxiety [Unknown]
  - Nervousness [Unknown]
  - Paranoia [Unknown]
  - Confusional state [Unknown]
